FAERS Safety Report 6936050-0 (Version None)
Quarter: 2010Q3

REPORT INFORMATION
  Report Type: 
  Country: None (occurrence: None)
  Receive Date: 20100823
  Receipt Date: 20100809
  Transmission Date: 20110219
  Serious: Yes (Other)
  Sender: FDA-Public Use
  Company Number: US-ELI_LILLY_AND_COMPANY-US201008004078

PATIENT
  Age: 60 Year
  Sex: Male

DRUGS (3)
  1. EFFIENT [Suspect]
     Indication: CARDIOVASCULAR EVENT PROPHYLAXIS
     Dosage: 60 MG, INITIAL LOADING DOSE
     Dates: start: 20100714
  2. EFFIENT [Suspect]
     Dosage: 10 MG, UNKNOWN
  3. ASPIRIN [Concomitant]

REACTIONS (2)
  - ATRIAL FIBRILLATION [None]
  - PERICARDITIS [None]
